FAERS Safety Report 21339140 (Version 2)
Quarter: 2024Q4

REPORT INFORMATION
  Report Type: Spontaneous
  Country: US (occurrence: US)
  Receive Date: 20220915
  Receipt Date: 20241125
  Transmission Date: 20250115
  Serious: Yes (Hospitalization)
  Sender: MYLAN
  Company Number: US-MYLANLABS-2022M1093460

PATIENT
  Age: 76 Year
  Sex: Female

DRUGS (1)
  1. MERCAPTOPURINE [Suspect]
     Active Substance: MERCAPTOPURINE
     Indication: Crohn^s disease
     Dosage: UNK
     Route: 065

REACTIONS (3)
  - Central nervous system lymphoma [Recovered/Resolved]
  - Epstein-Barr virus associated lymphoproliferative disorder [Recovered/Resolved]
  - Off label use [Unknown]
